FAERS Safety Report 8665372 (Version 3)
Quarter: 2013Q4

REPORT INFORMATION
  Report Type: Spontaneous
  Country: US (occurrence: US)
  Receive Date: 20120716
  Receipt Date: 20131223
  Transmission Date: 20140711
  Serious: Yes (Other)
  Sender: FDA-Public Use
  Company Number: US-BAYER-2012-069866

PATIENT
  Age: 21 Year
  Sex: Female

DRUGS (6)
  1. YAZ [Suspect]
     Dosage: UNK
     Dates: start: 2007, end: 2010
  2. ULTRAM [Concomitant]
     Dosage: UNK
     Dates: start: 20111207
  3. ZANAFLEX [Concomitant]
     Dosage: UNK
     Dates: start: 20111207
  4. REGLAN [Concomitant]
     Dosage: UNK
     Dates: start: 20111207
  5. BENTYL [Concomitant]
     Dosage: UNK
     Dates: start: 20111207
  6. ATIVAN [Concomitant]
     Dosage: UNK
     Dates: start: 20111207

REACTIONS (10)
  - Gallbladder disorder [None]
  - Cholecystitis chronic [None]
  - Biliary dyskinesia [None]
  - Injury [None]
  - Pain [None]
  - Emotional distress [None]
  - Anxiety [None]
  - Psychological trauma [None]
  - Vomiting [None]
  - Discomfort [None]
